FAERS Safety Report 5381766-3 (Version None)
Quarter: 2007Q3

REPORT INFORMATION
  Report Type: 
  Country: None (occurrence: None)
  Receive Date: 20070705
  Receipt Date: 20070705
  Transmission Date: 20080115
  Serious: No
  Sender: FDA-Public Use
  Company Number: None

PATIENT
  Age: 62 Year
  Sex: Male

DRUGS (8)
  1. HALFLYTELY [Suspect]
  2. AVODART [Concomitant]
  3. AVANDAMET [Concomitant]
  4. AMITRIPTYLINE HCL [Concomitant]
  5. LEVOTHYROXINE SODIUM [Concomitant]
  6. ASPIRIN [Concomitant]
  7. PLAVIX [Concomitant]
  8. DOXYCYCLINE [Concomitant]

REACTIONS (1)
  - COLITIS ISCHAEMIC [None]
